FAERS Safety Report 12571993 (Version 3)
Quarter: 2016Q4

REPORT INFORMATION
  Report Type: Spontaneous
  Country: US (occurrence: US)
  Receive Date: 20160719
  Receipt Date: 20161007
  Transmission Date: 20170207
  Serious: No
  Sender: FDA-Public Use
  Company Number: US-ALKERMES INC.-ALK-2016-001539

PATIENT
  Age: 39 Year
  Sex: Female
  Weight: 63.39 kg

DRUGS (4)
  1. ARISTADA [Suspect]
     Active Substance: ARIPIPRAZOLE LAUROXIL
     Indication: SCHIZOPHRENIA
     Dosage: 662 MG, QMO
     Route: 030
     Dates: start: 20160525, end: 20160615
  2. ARISTADA [Suspect]
     Active Substance: ARIPIPRAZOLE LAUROXIL
     Dosage: 882 MG, QMO
     Route: 030
     Dates: start: 20160615
  3. ABILIFY [Concomitant]
     Active Substance: ARIPIPRAZOLE
     Indication: SCHIZOPHRENIA
     Dosage: 20 AD, UNK
  4. INVEGA [Concomitant]
     Active Substance: PALIPERIDONE
     Indication: PROPHYLAXIS
     Dosage: 6 MG, QAM
     Route: 048
     Dates: start: 20160615

REACTIONS (4)
  - Hallucination, visual [Recovering/Resolving]
  - Needle issue [Recovered/Resolved]
  - Underdose [Recovered/Resolved]
  - Hallucination, auditory [Not Recovered/Not Resolved]

NARRATIVE: CASE EVENT DATE: 201605
